FAERS Safety Report 11094000 (Version 10)
Quarter: 2017Q4

REPORT INFORMATION
  Report Type: Report from Study
  Country: JP (occurrence: JP)
  Receive Date: 20150506
  Receipt Date: 20171214
  Transmission Date: 20180320
  Serious: Yes (Death, Life-Threatening, Hospitalization, Other)
  Sender: FDA-Public Use
  Company Number: JP-INCYTE CORPORATION-2015IN001897

PATIENT

DRUGS (2)
  1. WARFARIN [Suspect]
     Active Substance: WARFARIN
     Indication: PRODUCT USED FOR UNKNOWN INDICATION
     Dosage: 2 MG, UNK
     Route: 048
     Dates: end: 20150410
  2. JAKAFI [Suspect]
     Active Substance: RUXOLITINIB
     Indication: MYELOFIBROSIS
     Dosage: 5 MG, BID
     Route: 048
     Dates: start: 20150202, end: 20150409

REACTIONS (9)
  - Platelet count decreased [Unknown]
  - Respiratory disorder [Unknown]
  - Haemothorax [Not Recovered/Not Resolved]
  - Anaemia [Recovering/Resolving]
  - Primary myelofibrosis [Fatal]
  - Blood bilirubin increased [Not Recovered/Not Resolved]
  - Cardiac failure [Not Recovered/Not Resolved]
  - Haemorrhage subcutaneous [Fatal]
  - Shock haemorrhagic [Unknown]

NARRATIVE: CASE EVENT DATE: 201502
